FAERS Safety Report 9055055 (Version 1)
Quarter: 2013Q1

REPORT INFORMATION
  Report Type: Spontaneous
  Country: FR (occurrence: FR)
  Receive Date: 20130206
  Receipt Date: 20130206
  Transmission Date: 20140127
  Serious: Yes (Other)
  Sender: FDA-Public Use
  Company Number: FR-JNJFOC-20130115116

PATIENT
  Age: 23 Year
  Sex: Female

DRUGS (4)
  1. REMICADE [Suspect]
     Indication: CROHN^S DISEASE
     Route: 042
  2. REMICADE [Suspect]
     Indication: CROHN^S DISEASE
     Route: 042
  3. REMICADE [Suspect]
     Indication: CROHN^S DISEASE
     Dosage: 3RD INFUSION
     Route: 042
     Dates: start: 20130123, end: 20130123
  4. HYDROCORTISONE [Concomitant]
     Indication: PREMEDICATION
     Route: 065
     Dates: start: 20130123

REACTIONS (3)
  - Sense of oppression [Recovered/Resolved]
  - Erythema [Recovered/Resolved]
  - Infusion related reaction [Recovered/Resolved]
